FAERS Safety Report 7728799-7 (Version None)
Quarter: 2011Q3

REPORT INFORMATION
  Report Type: 
  Country: None (occurrence: None)
  Receive Date: 20110831
  Receipt Date: 20110816
  Transmission Date: 20111222
  Serious: Yes (Hospitalization)
  Sender: FDA-Public Use
  Company Number: 2011MA012015

PATIENT
  Age: 82 Year
  Sex: Female

DRUGS (7)
  1. MEDOXOMIL [Suspect]
     Indication: PRODUCT USED FOR UNKNOWN INDICATION
  2. CLOPIDOGREL [Concomitant]
  3. OLMESARTAN MEDOXOMIL [Concomitant]
  4. METOPROLOL SUCCINATE [Concomitant]
  5. METFORMIN HYDROCHLORIDE [Suspect]
     Indication: TYPE 2 DIABETES MELLITUS
     Dosage: 500 MG, QD
  6. SITAGLIPTIN [Concomitant]
  7. GABAPENTIN [Concomitant]

REACTIONS (2)
  - CONDITION AGGRAVATED [None]
  - FAECAL INCONTINENCE [None]
